FAERS Safety Report 5842323-5 (Version None)
Quarter: 2008Q3

REPORT INFORMATION
  Report Type: 
  Country: None (occurrence: None)
  Receive Date: 20080731
  Receipt Date: 20080411
  Transmission Date: 20090109
  Serious: No
  Sender: FDA-Public Use
  Company Number: US200803001333

PATIENT
  Age: 80 Year
  Sex: Female
  Weight: 87.1 kg

DRUGS (8)
  1. BYETTA [Suspect]
     Dosage: 5 UG, 2/D, SUBCUTANEOUS; 10 UG, 2/D, SUBCUTANEOUS
     Route: 058
     Dates: start: 20080101, end: 20080201
  2. BYETTA [Suspect]
     Dosage: 5 UG, 2/D, SUBCUTANEOUS; 10 UG, 2/D, SUBCUTANEOUS
     Route: 058
     Dates: start: 20080201
  3. XANAX [Concomitant]
  4. AMBIEN [Concomitant]
  5. INDERAL [Concomitant]
  6. SINGULAIR [Concomitant]
  7. PRANDIN (DEFLAZACORT) [Concomitant]
  8. ALBUTEROL [Concomitant]

REACTIONS (10)
  - ASTHENIA [None]
  - BLOOD GLUCOSE DECREASED [None]
  - BLOOD GLUCOSE INCREASED [None]
  - FALL [None]
  - FEELING COLD [None]
  - HEAD INJURY [None]
  - HYPERHIDROSIS [None]
  - PAIN [None]
  - VERTEBRAL INJURY [None]
  - VOMITING [None]
